FAERS Safety Report 10006437 (Version 1)
Quarter: 2014Q1

REPORT INFORMATION
  Report Type: Spontaneous
  Country: US (occurrence: None)
  Receive Date: 20140311
  Receipt Date: 20140311
  Transmission Date: 20141002
  Serious: Yes (Other)
  Sender: FDA-Public Use
  Company Number: A1063508A

PATIENT
  Age: 50 Year
  Sex: Female

DRUGS (1)
  1. SODIUM FLUORIDE [Suspect]
     Route: 004

REACTIONS (4)
  - Angioedema [None]
  - Lip dry [None]
  - Drug hypersensitivity [None]
  - Product formulation issue [None]
